FAERS Safety Report 5190499-8 (Version None)
Quarter: 2006Q4

REPORT INFORMATION
  Report Type: 
  Country: None (occurrence: None)
  Receive Date: 20061222
  Receipt Date: 20061204
  Transmission Date: 20070319
  Serious: Yes (Hospitalization)
  Sender: FDA-Public Use
  Company Number: JP-JPN-A200605182

PATIENT
  Age: 17 Year
  Sex: Male

DRUGS (4)
  1. LAMICTAL [Suspect]
     Indication: EPILEPSY
     Dosage: 25MG PER DAY
     Route: 048
     Dates: start: 20061024
  2. ALEVIATIN [Suspect]
     Indication: EPILEPSY
     Route: 048
     Dates: start: 19960220
  3. DEPAKENE [Concomitant]
     Indication: EPILEPSY
     Dosage: 1800MG PER DAY
     Route: 048
     Dates: start: 19920312
  4. UNKNOWN DRUG [Concomitant]
     Indication: EPILEPSY
     Route: 048
     Dates: start: 19980626

REACTIONS (6)
  - CONVULSION [None]
  - DIPLOPIA [None]
  - DIZZINESS [None]
  - DRUG TOXICITY [None]
  - DYSLALIA [None]
  - SOMNOLENCE [None]
